FAERS Safety Report 6873381-7 (Version None)
Quarter: 2010Q3

REPORT INFORMATION
  Report Type: 
  Country: None (occurrence: None)
  Receive Date: 20100721
  Receipt Date: 20100709
  Transmission Date: 20110219
  Serious: Yes (Hospitalization, Other)
  Sender: FDA-Public Use
  Company Number: 014609

PATIENT
  Sex: Female
  Weight: 58.0604 kg

DRUGS (5)
  1. LACOSAMIDE [Suspect]
     Indication: EPILEPSY
     Dosage: 300 MG BID ORAL
     Route: 048
     Dates: start: 20090225, end: 20100623
  2. HYDROCORTISONE [Concomitant]
  3. CITALOPRAM [Concomitant]
  4. VICODIN [Concomitant]
  5. XANAX [Concomitant]

REACTIONS (16)
  - ARRHYTHMIA [None]
  - BLOOD GLUCOSE INCREASED [None]
  - BLOOD PRESSURE DIASTOLIC DECREASED [None]
  - BUNDLE BRANCH BLOCK RIGHT [None]
  - CONDITION AGGRAVATED [None]
  - DRUG INEFFECTIVE [None]
  - DYSARTHRIA [None]
  - FEELING ABNORMAL [None]
  - GRAND MAL CONVULSION [None]
  - HEART RATE IRREGULAR [None]
  - MUSCULAR WEAKNESS [None]
  - NEUTROPHIL PERCENTAGE INCREASED [None]
  - OCCULT BLOOD POSITIVE [None]
  - POSTICTAL STATE [None]
  - SOMNOLENCE [None]
  - UNRESPONSIVE TO STIMULI [None]
